FAERS Safety Report 5601798-7 (Version None)
Quarter: 2008Q1

REPORT INFORMATION
  Report Type: 
  Country: None (occurrence: None)
  Receive Date: 20080124
  Receipt Date: 20080117
  Transmission Date: 20080703
  Serious: Yes (Hospitalization, Other)
  Sender: FDA-Public Use
  Company Number: GR-ABBOTT-08P-066-0433843-00

PATIENT
  Age: 56 Year
  Sex: Male
  Weight: 74 kg

DRUGS (9)
  1. ZEMPLAR [Suspect]
     Indication: HYPERPARATHYROIDISM SECONDARY
     Route: 042
     Dates: start: 20070611
  2. QUINAPRIL HCL [Concomitant]
     Indication: HYPERTENSION
  3. CLOPIDOGREL BISULFATE [Concomitant]
     Indication: RENAL FAILURE CHRONIC
  4. INTELECTA [Concomitant]
     Indication: RENAL FAILURE CHRONIC
  5. FOLIC ACID [Concomitant]
     Indication: DRUG USE FOR UNKNOWN INDICATION
  6. FORSENOL [Concomitant]
     Indication: BLOOD PHOSPHORUS INCREASED
  7. CINACALCET [Concomitant]
     Indication: HYPERPARATHYROIDISM SECONDARY
  8. SEVELAMER [Concomitant]
     Indication: DRUG USE FOR UNKNOWN INDICATION
  9. EVATON [Concomitant]
     Indication: RENAL FAILURE CHRONIC

REACTIONS (2)
  - CORONARY ARTERY STENOSIS [None]
  - MYOCARDIAL INFARCTION [None]
